FAERS Safety Report 5750457-9 (Version None)
Quarter: 2008Q2

REPORT INFORMATION
  Report Type: 
  Country: None (occurrence: None)
  Receive Date: 20080528
  Receipt Date: 20080104
  Transmission Date: 20081010
  Serious: No
  Sender: FDA-Public Use
  Company Number: US-KINGPHARMUSA00001-K200800015

PATIENT

DRUGS (8)
  1. AVINZA [Suspect]
     Indication: PAIN
     Dosage: 30 MG, QD
     Route: 048
     Dates: start: 20071201
  2. MULTIVITAMIN  /00831701/ [Concomitant]
     Dosage: 1, QD
  3. CALCIUM [Concomitant]
     Dosage: 1, QD
  4. NEURONTIN [Concomitant]
     Dosage: 100 MG, QD, QPM
     Route: 048
  5. CELEBREX [Concomitant]
     Dosage: 20 MG, QD, QPM
     Route: 048
  6. DITROPAN [Concomitant]
     Dosage: 10 MG, BID
     Route: 048
  7. PREMARIN [Concomitant]
     Dosage: .425 UNK, QD
     Route: 048
  8. GLUCOSAMINE [Concomitant]

REACTIONS (2)
  - EXPIRED DRUG ADMINISTERED [None]
  - NO ADVERSE EVENT [None]
